FAERS Safety Report 11676726 (Version 1)
Quarter: 2015Q4

REPORT INFORMATION
  Report Type: Spontaneous
  Country: US (occurrence: US)
  Receive Date: 20151027
  Receipt Date: 20151027
  Transmission Date: 20160304
  Serious: No
  Sender: FDA-Public Use
  Company Number: US-ELI_LILLY_AND_COMPANY-US201009008237

PATIENT
  Sex: Female

DRUGS (4)
  1. VITAMIN D [Concomitant]
     Active Substance: CHOLECALCIFEROL
  2. ZOCOR [Concomitant]
     Active Substance: SIMVASTATIN
  3. CITRICAL [Concomitant]
     Active Substance: CALCIUM CITRATE
  4. FORTEO [Suspect]
     Active Substance: TERIPARATIDE
     Indication: OSTEOPOROSIS
     Dosage: 20 UG, DAILY (1/D)
     Dates: start: 20100621

REACTIONS (6)
  - Pain of skin [Unknown]
  - Genital rash [Unknown]
  - Rash pruritic [Unknown]
  - Rash [Unknown]
  - Hypersensitivity [Unknown]
  - Skin discolouration [Unknown]
